FAERS Safety Report 8625381-4 (Version None)
Quarter: 2012Q3

REPORT INFORMATION
  Report Type: 
  Country: None (occurrence: None)
  Receive Date: 20120827
  Receipt Date: 20120822
  Transmission Date: 20120928
  Serious: Yes (Death, Other)
  Sender: FDA-Public Use
  Company Number: US-ASTRAZENECA-2011SE54727

PATIENT
  Age: 81 Year
  Sex: Male

DRUGS (1)
  1. MERREM [Suspect]
     Route: 042

REACTIONS (3)
  - CARDIAC ARREST [None]
  - BEDRIDDEN [None]
  - INFECTION [None]
